FAERS Safety Report 10367196 (Version 1)
Quarter: 2014Q3

REPORT INFORMATION
  Report Type: Spontaneous
  Country: JP (occurrence: JP)
  Receive Date: 20140807
  Receipt Date: 20140807
  Transmission Date: 20150326
  Serious: Yes (Death, Other)
  Sender: FDA-Public Use
  Company Number: JP-009507513-1408JPN001378

PATIENT
  Age: 23 Year
  Sex: Female

DRUGS (2)
  1. TRYPTANOL [Suspect]
     Active Substance: AMITRIPTYLINE
     Indication: SCHIZOPHRENIA
     Dosage: UNK
     Route: 048
  2. VEGETAMIN B [Concomitant]
     Active Substance: CHLORPROMAZINE HYDROCHLORIDE\PHENOBARBITAL\PROMETHAZINE
     Indication: SCHIZOPHRENIA
     Dosage: 90 DF, UNK
     Route: 048

REACTIONS (2)
  - Intentional overdose [Fatal]
  - Cardio-respiratory arrest [Fatal]
